FAERS Safety Report 8202418-8 (Version None)
Quarter: 2012Q1

REPORT INFORMATION
  Report Type: 
  Country: None (occurrence: None)
  Receive Date: 20120312
  Receipt Date: 20120305
  Transmission Date: 20120608
  Serious: Yes (Death)
  Sender: FDA-Public Use
  Company Number: US-GENZYME-CERZ-1002418

PATIENT
  Sex: Female
  Weight: 20.5 kg

DRUGS (1)
  1. CEREZYME [Suspect]
     Indication: GAUCHER'S DISEASE
     Dosage: 58.5 U/KG, Q2W
     Route: 042
     Dates: start: 20090830, end: 20120304

REACTIONS (1)
  - DEATH [None]
